FAERS Safety Report 10354624 (Version 1)
Quarter: 2014Q3

REPORT INFORMATION
  Report Type: Spontaneous
  Country: US (occurrence: None)
  Receive Date: 20140729
  Receipt Date: 20140729
  Transmission Date: 20150326
  Serious: No
  Sender: FDA-Public Use
  Company Number: None

PATIENT
  Age: 27 Year
  Sex: Female
  Weight: 106.6 kg

DRUGS (1)
  1. FLUOXETINE HCL [Suspect]
     Active Substance: FLUOXETINE HYDROCHLORIDE
     Indication: DEPRESSION
     Dosage: 1 PILL ONCE DAILY TAKEN BY MOUTH
     Route: 048
     Dates: start: 20140717, end: 20140725

REACTIONS (3)
  - Painful respiration [None]
  - Chest discomfort [None]
  - Abdominal pain upper [None]

NARRATIVE: CASE EVENT DATE: 20140722
